FAERS Safety Report 19653762 (Version 1)
Quarter: 2021Q3

REPORT INFORMATION
  Report Type: Spontaneous
  Country: US (occurrence: US)
  Receive Date: 20210804
  Receipt Date: 20210804
  Transmission Date: 20211014
  Serious: No
  Sender: FDA-Public Use
  Company Number: US-APOTEX-2021AP017422

PATIENT
  Age: 57 Year
  Sex: Female

DRUGS (13)
  1. GABAPENTIN. [Suspect]
     Active Substance: GABAPENTIN
     Indication: TYPE 2 DIABETES MELLITUS
     Dosage: 100 MILLIGRAM, QD (AT BED TIME)
     Route: 065
  2. GABAPENTIN. [Interacting]
     Active Substance: GABAPENTIN
     Dosage: INCREASE BY 100 MG WEEKLY TO A MAXIMUM OF 200 MG THREE TIMES A DAY
     Route: 065
  3. METFORMIN [Concomitant]
     Active Substance: METFORMIN HYDROCHLORIDE
     Indication: TYPE 2 DIABETES MELLITUS
     Dosage: 500 MILLIGRAM, TID
     Route: 065
  4. RAMIPRIL. [Concomitant]
     Active Substance: RAMIPRIL
     Indication: HYPERTENSION
     Dosage: 5 MILLIGRAM, QD
     Route: 065
  5. VITAMIN D [VITAMIN D NOS] [Concomitant]
     Active Substance: VITAMIN D NOS
     Indication: PRODUCT USED FOR UNKNOWN INDICATION
     Dosage: 2000 INTERNATIONAL UNIT, QD (2 TABLETS)
     Route: 065
  6. GABAPENTIN. [Interacting]
     Active Substance: GABAPENTIN
     Dosage: 400 MILLIGRAM, QD (100 MG IN THE MORNING, 100 MG IN THE AFTERNOON, AND 200 MG AT BEDTIME)
     Route: 065
  7. PREGABALIN. [Interacting]
     Active Substance: PREGABALIN
     Indication: DIABETIC NEUROPATHY
     Dosage: 25 MILLIGRAM, QD AT BED TIME
     Route: 065
  8. PREGABALIN. [Interacting]
     Active Substance: PREGABALIN
     Dosage: 25 MILLIGRAM, BID (50 MG PER DAY)
     Route: 065
  9. GABAPENTIN. [Interacting]
     Active Substance: GABAPENTIN
     Indication: SYMPTOM RECURRENCE
     Dosage: 100 MILLIGRAM, TID (300 MG PER DAY)
     Route: 065
  10. GLICLAZIDE MR [Concomitant]
     Active Substance: GLICLAZIDE
     Indication: HYPERGLYCAEMIA
     Dosage: 30 MILLIGRAM, BID
     Route: 065
  11. VITAMIN B12 [VITAMIN B12 NOS] [Concomitant]
     Active Substance: CYANOCOBALAMIN
     Indication: PRODUCT USED FOR UNKNOWN INDICATION
     Dosage: 1000 MICROGRAM, QD (1 TABLET)
     Route: 065
  12. PREGABALIN. [Interacting]
     Active Substance: PREGABALIN
     Indication: DISEASE RECURRENCE
     Dosage: INCREASE THE DOSE BY 25 MG WEEKLY TO A MAXIMUM OF 50 MG PER DAY
     Route: 065
  13. MULTIVITAMIN [ASCORBIC ACID;BIOTIN;CALCIUM PANTOTHENATE;CYANOCOBALAMIN [Concomitant]
     Active Substance: VITAMINS
     Indication: PRODUCT USED FOR UNKNOWN INDICATION
     Dosage: 1 DOSAGE FORM, QD
     Route: 065

REACTIONS (8)
  - Somnolence [Recovered/Resolved]
  - Drug interaction [Unknown]
  - Ataxia [Unknown]
  - Disease recurrence [Recovering/Resolving]
  - Duplicate therapy error [Unknown]
  - Fatigue [Recovered/Resolved]
  - Dizziness [Recovered/Resolved]
  - Diabetic neuropathy [Recovering/Resolving]
